FAERS Safety Report 10900937 (Version 1)
Quarter: 2015Q1

REPORT INFORMATION
  Report Type: Report from Study
  Country: NZ (occurrence: NZ)
  Receive Date: 20150310
  Receipt Date: 20150310
  Transmission Date: 20150721
  Serious: Yes (Hospitalization)
  Sender: FDA-Public Use
  Company Number: NZ-ROCHE-1548938

PATIENT
  Age: 56 Year
  Sex: Female

DRUGS (20)
  1. METHOTREXATE [Suspect]
     Active Substance: METHOTREXATE
     Indication: MALIGNANT LYMPHOID NEOPLASM
     Route: 042
     Dates: start: 20150224
  2. CARMUSTINE [Suspect]
     Active Substance: CARMUSTINE
     Indication: MALIGNANT LYMPHOID NEOPLASM
     Route: 042
     Dates: start: 20150227
  3. FLUCONAZOLE. [Concomitant]
     Active Substance: FLUCONAZOLE
     Route: 048
  4. SEVREDOL [Concomitant]
     Active Substance: MORPHINE
     Dosage: FOR 2 WEEKS
     Route: 048
  5. TENIPOSIDE. [Suspect]
     Active Substance: TENIPOSIDE
     Indication: MALIGNANT LYMPHOID NEOPLASM
     Dosage: DATE OF LAST DOSE ADMINISTERED: 26/FEB/2015
     Route: 042
     Dates: start: 20150225
  6. LAXSOL [Concomitant]
     Dosage: PRN, FOR 2 WEEKS
     Route: 048
  7. LOVIR [Concomitant]
     Route: 048
  8. PARACETAMOL [Concomitant]
     Active Substance: ACETAMINOPHEN
     Dosage: FOR 1 MONTH
     Route: 048
  9. CHLORHEXIDINE GLUCONATE. [Concomitant]
     Active Substance: CHLORHEXIDINE GLUCONATE
     Route: 048
  10. DEXAMETHASONE. [Concomitant]
     Active Substance: DEXAMETHASONE
     Route: 048
  11. LACTULOSE. [Concomitant]
     Active Substance: LACTULOSE
     Dosage: FORM STRENGTH: 10G/15 ML
     Route: 048
  12. ZEFFIX [Concomitant]
     Active Substance: LAMIVUDINE
     Route: 048
  13. LATANOPROST. [Concomitant]
     Active Substance: LATANOPROST
     Dosage: FORM STRENGTH: 50MCG/ML
     Route: 065
  14. RITUXIMAB [Suspect]
     Active Substance: RITUXIMAB
     Indication: MALIGNANT LYMPHOID NEOPLASM
     Route: 042
     Dates: start: 20150203
  15. PREDNISOLONE. [Suspect]
     Active Substance: PREDNISOLONE
     Indication: MALIGNANT LYMPHOID NEOPLASM
     Dosage: DATE OF LAST DOSE ADMINISTERED: 28/FEB/2015
     Route: 065
     Dates: start: 20150224
  16. THIAMINE HYDROCHLORIDE. [Concomitant]
     Active Substance: THIAMINE HYDROCHLORIDE
     Dosage: FOR 2 WEEKS
     Route: 048
  17. OMEPRAZOLE. [Concomitant]
     Active Substance: OMEPRAZOLE
     Dosage: FOR 2 WEEKS
     Route: 048
  18. CURAM DUO [Concomitant]
     Dosage: FOR 2 WEEKS
     Route: 048
  19. M-ESLON [Concomitant]
     Active Substance: MORPHINE SULFATE
     Dosage: FOR 2 WEEKS
     Route: 048
  20. ONDANSETRON [Concomitant]
     Active Substance: ONDANSETRON
     Route: 048

REACTIONS (1)
  - Memory impairment [Recovered/Resolved]

NARRATIVE: CASE EVENT DATE: 20150228
